FAERS Safety Report 25437156 (Version 4)
Quarter: 2025Q3

REPORT INFORMATION
  Report Type: Spontaneous
  Country: US (occurrence: US)
  Receive Date: 20250616
  Receipt Date: 20250804
  Transmission Date: 20251020
  Serious: No
  Sender: ROCHE
  Company Number: US-ROCHE-10000306028

PATIENT
  Age: 80 Year
  Sex: Female
  Weight: 104.78 kg

DRUGS (1)
  1. ACTEMRA [Suspect]
     Active Substance: TOCILIZUMAB
     Indication: Rheumatoid arthritis
     Route: 058
     Dates: start: 2024

REACTIONS (5)
  - Eye disorder [Not Recovered/Not Resolved]
  - Device use error [Unknown]
  - Intercepted product storage error [Unknown]
  - Device defective [Unknown]
  - Weight decreased [Unknown]

NARRATIVE: CASE EVENT DATE: 20250101
